FAERS Safety Report 11959463 (Version 9)
Quarter: 2018Q1

REPORT INFORMATION
  Report Type: Spontaneous
  Country: CA (occurrence: CA)
  Receive Date: 20160126
  Receipt Date: 20180307
  Transmission Date: 20180508
  Serious: Yes (Other)
  Sender: FDA-Public Use
  Company Number: CA-ROCHE-1698185

PATIENT
  Age: 58 Year
  Sex: Male

DRUGS (17)
  1. XOLAIR [Suspect]
     Active Substance: OMALIZUMAB
     Route: 058
     Dates: start: 20140206
  2. XOLAIR [Suspect]
     Active Substance: OMALIZUMAB
     Route: 058
     Dates: start: 20160513
  3. XOLAIR [Suspect]
     Active Substance: OMALIZUMAB
     Route: 058
     Dates: start: 20160610
  4. XOLAIR [Suspect]
     Active Substance: OMALIZUMAB
     Route: 058
     Dates: start: 20170627
  5. XOLAIR [Suspect]
     Active Substance: OMALIZUMAB
     Route: 058
     Dates: start: 20131010
  6. XOLAIR [Suspect]
     Active Substance: OMALIZUMAB
     Route: 058
     Dates: start: 20160115
  7. XOLAIR [Suspect]
     Active Substance: OMALIZUMAB
     Indication: ASTHMA
     Route: 058
     Dates: start: 20120905
  8. PULMICORT TURBUHALER [Concomitant]
     Active Substance: BUDESONIDE
     Indication: PRODUCT USED FOR UNKNOWN INDICATION
     Route: 065
  9. ADVAIR HFA [Concomitant]
     Active Substance: FLUTICASONE PROPIONATE\SALMETEROL XINAFOATE
     Indication: PRODUCT USED FOR UNKNOWN INDICATION
     Route: 065
  10. XOLAIR [Suspect]
     Active Substance: OMALIZUMAB
     Route: 058
     Dates: start: 20160315
  11. XOLAIR [Suspect]
     Active Substance: OMALIZUMAB
     Route: 058
     Dates: start: 20130705
  12. XOLAIR [Suspect]
     Active Substance: OMALIZUMAB
     Route: 058
     Dates: start: 20160707
  13. XOLAIR [Suspect]
     Active Substance: OMALIZUMAB
     Route: 058
     Dates: start: 20171012, end: 20171012
  14. XOLAIR [Suspect]
     Active Substance: OMALIZUMAB
     Route: 058
     Dates: start: 20160212
  15. XOLAIR [Suspect]
     Active Substance: OMALIZUMAB
     Route: 058
     Dates: start: 20160415
  16. XOLAIR [Suspect]
     Active Substance: OMALIZUMAB
     Route: 058
     Dates: start: 20170428
  17. VENTOLIN [Concomitant]
     Active Substance: ALBUTEROL SULFATE
     Indication: PRODUCT USED FOR UNKNOWN INDICATION
     Route: 065

REACTIONS (11)
  - Increased upper airway secretion [Unknown]
  - Fall [Unknown]
  - Wheezing [Unknown]
  - Lower respiratory tract infection [Unknown]
  - Skeletal injury [Unknown]
  - Upper respiratory tract infection [Recovered/Resolved]
  - Dyspnoea [Unknown]
  - Body temperature decreased [Unknown]
  - Nasopharyngitis [Unknown]
  - Oxygen saturation decreased [Unknown]
  - Haemorrhage [Unknown]

NARRATIVE: CASE EVENT DATE: 20160102
